FAERS Safety Report 9914328 (Version 4)
Quarter: 2014Q3

REPORT INFORMATION
  Report Type: Spontaneous
  Country: US (occurrence: US)
  Receive Date: 20140220
  Receipt Date: 20140722
  Transmission Date: 20150326
  Serious: Yes (Death, Hospitalization, Other)
  Sender: FDA-Public Use
  Company Number: US-009507513-1402USA009837

PATIENT
  Sex: Female
  Weight: 81.63 kg

DRUGS (4)
  1. JANUVIA [Suspect]
     Active Substance: SITAGLIPTIN PHOSPHATE
     Indication: TYPE 2 DIABETES MELLITUS
     Dosage: 50 MG, QD
     Route: 048
     Dates: start: 20081204, end: 20100506
  2. JANUVIA [Suspect]
     Active Substance: SITAGLIPTIN PHOSPHATE
     Dosage: 5 MG, QD
     Route: 048
  3. JANUVIA [Suspect]
     Active Substance: SITAGLIPTIN PHOSPHATE
     Dosage: 15 MG, QD
     Route: 048
     Dates: start: 200911
  4. JANUVIA [Suspect]
     Active Substance: SITAGLIPTIN PHOSPHATE
     Dosage: 50 MG, QD
     Route: 048
     Dates: start: 20100730, end: 201210

REACTIONS (90)
  - Cardiac arrest [Fatal]
  - Cardiogenic shock [Fatal]
  - Lymphadenectomy [Unknown]
  - Coronary artery stenosis [Unknown]
  - Cerebrovascular accident [Unknown]
  - Lung neoplasm malignant [Unknown]
  - Renal cyst [Unknown]
  - Hypovolaemia [Unknown]
  - Drug intolerance [Unknown]
  - Troponin increased [Unknown]
  - Metastases to lymph nodes [Unknown]
  - Aortic aneurysm [Unknown]
  - Renal atrophy [Unknown]
  - Hemiparesis [Unknown]
  - Diabetes mellitus inadequate control [Unknown]
  - Dyspnoea [Unknown]
  - Musculoskeletal pain [Unknown]
  - Periportal oedema [Unknown]
  - Malnutrition [Unknown]
  - Inappropriate antidiuretic hormone secretion [Recovering/Resolving]
  - Aspartate aminotransferase increased [Unknown]
  - Abdominal pain [Not Recovered/Not Resolved]
  - Inappropriate schedule of drug administration [Unknown]
  - Cataract [Unknown]
  - Brain natriuretic peptide increased [Unknown]
  - Coagulopathy [Unknown]
  - Thyroid neoplasm [Unknown]
  - Myocardial infarction [Unknown]
  - Anaemia [Unknown]
  - Gastric ulcer haemorrhage [Unknown]
  - Renal infarct [Unknown]
  - Colon cancer [Unknown]
  - Asthenia [Unknown]
  - Colectomy [Not Recovered/Not Resolved]
  - Inappropriate schedule of drug administration [Unknown]
  - Cardiac disorder [Unknown]
  - Left ventricular dysfunction [Unknown]
  - Cardiac septal defect [Unknown]
  - Pulmonary fibrosis [Unknown]
  - Pancreatic carcinoma metastatic [Unknown]
  - Acute myocardial infarction [Fatal]
  - Anaemia [Unknown]
  - Gastric ulcer [Unknown]
  - Urinary tract infection [Unknown]
  - Dehydration [Unknown]
  - Coronary artery occlusion [Unknown]
  - Fear of death [Unknown]
  - Hysterectomy [Unknown]
  - Gastrooesophageal reflux disease [Unknown]
  - Inappropriate schedule of drug administration [Unknown]
  - Thrombocytopenia [Unknown]
  - Chronic gastritis [Unknown]
  - Emphysema [Unknown]
  - Atelectasis [Unknown]
  - Aortic arteriosclerosis [Unknown]
  - Liver disorder [Unknown]
  - Vomiting [Unknown]
  - Nausea [Unknown]
  - Pancreatectomy [Unknown]
  - Tachycardia [Unknown]
  - Small intestinal obstruction [Recovered/Resolved]
  - Metastases to peritoneum [Unknown]
  - Colectomy [Unknown]
  - Kidney fibrosis [Unknown]
  - Bundle branch block left [Unknown]
  - Hyponatraemia [Unknown]
  - Anaemia of chronic disease [Unknown]
  - Atrial flutter [Unknown]
  - Hypokinesia [Unknown]
  - Anastomotic ulcer [Unknown]
  - Splenectomy [Unknown]
  - Chest pain [Unknown]
  - Intestinal obstruction [Unknown]
  - Thrombocytosis [Unknown]
  - Gastrointestinal haemorrhage [Unknown]
  - Coronary artery disease [Unknown]
  - Ischaemic stroke [Unknown]
  - Glaucoma [Unknown]
  - Dehydration [Unknown]
  - Hypoglycaemia [Unknown]
  - Constipation [Unknown]
  - Fluid overload [Unknown]
  - Gastric ulcer haemorrhage [Unknown]
  - Pancreatitis [Unknown]
  - Diabetic nephropathy [Unknown]
  - White blood cells urine [Unknown]
  - Blood glucose decreased [Unknown]
  - Aortic dilatation [Unknown]
  - Pleural effusion [Unknown]
  - Constipation [Unknown]

NARRATIVE: CASE EVENT DATE: 20081204
